FAERS Safety Report 7569905-7 (Version None)
Quarter: 2011Q2

REPORT INFORMATION
  Report Type: 
  Country: None (occurrence: None)
  Receive Date: 20110622
  Receipt Date: 20110622
  Transmission Date: 20111010
  Serious: Yes (Death)
  Sender: FDA-Public Use
  Company Number: None

PATIENT
  Age: 82 Year
  Sex: Male

DRUGS (5)
  1. LASIX [Concomitant]
  2. REVLIMID [Suspect]
     Indication: MYELODYSPLASTIC SYNDROME
     Dosage: 5MG QD ORALLY
     Route: 048
     Dates: start: 20090601, end: 20090801
  3. LEVOTHROID [Concomitant]
  4. SPIRIVA WITH HANDIHALER [Concomitant]
  5. K-TAB [Concomitant]

REACTIONS (2)
  - UPPER RESPIRATORY TRACT INFECTION [None]
  - NO THERAPEUTIC RESPONSE [None]
